FAERS Safety Report 11360378 (Version 1)
Quarter: 2015Q3

REPORT INFORMATION
  Report Type: Report from Study
  Country: US (occurrence: US)
  Receive Date: 20150810
  Receipt Date: 20150810
  Transmission Date: 20151125
  Serious: No
  Sender: FDA-Public Use
  Company Number: PHEH2014US021527

PATIENT
  Age: 40 Year
  Sex: Female

DRUGS (9)
  1. VITAMIN D [Concomitant]
     Active Substance: CHOLECALCIFEROL
     Indication: PRODUCT USED FOR UNKNOWN INDICATION
     Dosage: UNK
     Route: 065
  2. EXTAVIA [Suspect]
     Active Substance: INTERFERON BETA-1B
     Dosage: 0.125 MG, (0.5 ML FOR WEEKS 3 TO 4), QOD
     Route: 058
  3. EXTAVIA [Suspect]
     Active Substance: INTERFERON BETA-1B
     Dosage: 0.1875 MG (0.75 ML FOR WEEKS 5 TO 6), QOD
     Route: 058
  4. EXTAVIA [Suspect]
     Active Substance: INTERFERON BETA-1B
     Dosage: 0.25 MG, (01 ML FOR WEEKS 7 AND ABOVE, QOD)
     Route: 058
     Dates: start: 201412
  5. EXTAVIA [Suspect]
     Active Substance: INTERFERON BETA-1B
     Dosage: 0.25 MG, (01 ML FOR WEEKS 7 AND ABOVE, QOD)
     Route: 058
  6. EXTAVIA [Suspect]
     Active Substance: INTERFERON BETA-1B
     Indication: MULTIPLE SCLEROSIS
     Dosage: 0.625 MG, (0.25 ML FOR WEEKS 1 TO 2), QOD
     Route: 058
     Dates: start: 20141021
  7. ALEVE [Concomitant]
     Active Substance: NAPROXEN SODIUM
     Indication: PRODUCT USED FOR UNKNOWN INDICATION
     Dosage: UNK
     Route: 065
  8. ALPRAZOLAM. [Concomitant]
     Active Substance: ALPRAZOLAM
     Indication: PRODUCT USED FOR UNKNOWN INDICATION
     Dosage: PRN
     Route: 065
  9. EXTAVIA [Suspect]
     Active Substance: INTERFERON BETA-1B
     Dosage: 0.3 MG (VIAL)
     Route: 058

REACTIONS (6)
  - Injection site mass [Not Recovered/Not Resolved]
  - Injection site extravasation [Unknown]
  - Abdominal discomfort [Recovering/Resolving]
  - Abdominal pain [Recovering/Resolving]
  - Injection site erythema [Recovering/Resolving]
  - Injection site irritation [Unknown]

NARRATIVE: CASE EVENT DATE: 20141023
